FAERS Safety Report 7412838-7 (Version None)
Quarter: 2011Q2

REPORT INFORMATION
  Report Type: 
  Country: None (occurrence: None)
  Receive Date: 20110413
  Receipt Date: 20110406
  Transmission Date: 20111010
  Serious: Yes (Hospitalization)
  Sender: FDA-Public Use
  Company Number: B0711969A

PATIENT
  Sex: Male
  Weight: 67 kg

DRUGS (8)
  1. ALKERAN [Suspect]
     Indication: STEM CELL TRANSPLANT
     Dosage: 170MG PER DAY
     Route: 042
     Dates: start: 20060206, end: 20060207
  2. FUROSEMIDE [Concomitant]
     Dosage: 20MG PER DAY
     Route: 042
     Dates: start: 20060206, end: 20060207
  3. ACYCLOVIR [Concomitant]
     Dosage: 1000MG PER DAY
     Route: 048
     Dates: start: 20060206
  4. DIFLUCAN [Concomitant]
     Dosage: 200MG PER DAY
     Route: 048
     Dates: start: 20060206, end: 20060220
  5. KYTRIL [Concomitant]
     Dosage: 3MG PER DAY
     Route: 042
     Dates: start: 20060206, end: 20060207
  6. CRAVIT [Suspect]
     Dosage: 300MG PER DAY
     Route: 048
     Dates: start: 20060206, end: 20060220
  7. ZYLORIC [Concomitant]
     Dosage: 200MG PER DAY
     Route: 048
     Dates: start: 20060206, end: 20060220
  8. ULCERLMIN [Concomitant]
     Dosage: 3G PER DAY
     Route: 048
     Dates: start: 20060201, end: 20060421

REACTIONS (4)
  - SEPSIS [None]
  - THROMBOPHLEBITIS [None]
  - PLEURAL EFFUSION [None]
  - MEDIASTINITIS [None]
